FAERS Safety Report 16708377 (Version 2)
Quarter: 2019Q3

REPORT INFORMATION
  Report Type: Spontaneous
  Country: BR (occurrence: BR)
  Receive Date: 20190816
  Receipt Date: 20190823
  Transmission Date: 20191004
  Serious: No
  Sender: FDA-Public Use
  Company Number: BR-AMGEN-BRASP2019130342

PATIENT
  Age: 49 Year
  Sex: Female
  Weight: 83 kg

DRUGS (3)
  1. ENBREL [Suspect]
     Active Substance: ETANERCEPT
     Dosage: ONE APPLICATION PER WEEK
     Route: 065
     Dates: start: 2014, end: 201907
  2. ENBREL [Suspect]
     Active Substance: ETANERCEPT
     Indication: RHEUMATOID ARTHRITIS
     Dosage: UNK, WEEKLY
     Route: 065
     Dates: start: 2010
  3. SIMVASTATIN. [Concomitant]
     Active Substance: SIMVASTATIN
     Indication: BLOOD TRIGLYCERIDES INCREASED
     Dosage: UNK

REACTIONS (3)
  - Influenza [Not Recovered/Not Resolved]
  - Fibromyalgia [Not Recovered/Not Resolved]
  - Thyroid disorder [Recovered/Resolved]

NARRATIVE: CASE EVENT DATE: 2018
